FAERS Safety Report 18577618 (Version 1)
Quarter: 2020Q4

REPORT INFORMATION
  Report Type: Report from Study
  Country: CA (occurrence: CA)
  Receive Date: 20201203
  Receipt Date: 20201203
  Transmission Date: 20210114
  Serious: Yes (Other)
  Sender: FDA-Public Use
  Company Number: CA-JNJFOC-20201151375

PATIENT
  Age: 70 Year
  Sex: Female

DRUGS (1)
  1. REMICADE [Suspect]
     Active Substance: INFLIXIMAB
     Indication: CROHN^S DISEASE
     Route: 042

REACTIONS (3)
  - Salmonellosis [Recovered/Resolved]
  - Hypertension [Not Recovered/Not Resolved]
  - Infusion related reaction [Not Recovered/Not Resolved]

NARRATIVE: CASE EVENT DATE: 20201001
